FAERS Safety Report 5820643-8 (Version None)
Quarter: 2008Q3

REPORT INFORMATION
  Report Type: 
  Country: None (occurrence: None)
  Receive Date: 20080724
  Receipt Date: 20071219
  Transmission Date: 20090109
  Serious: No
  Sender: FDA-Public Use
  Company Number: A0700796A

PATIENT
  Sex: Female

DRUGS (2)
  1. AVANDIA [Suspect]
     Indication: DRUG USE FOR UNKNOWN INDICATION
     Route: 065
  2. ACTOS [Suspect]
     Indication: DRUG USE FOR UNKNOWN INDICATION
     Route: 065

REACTIONS (3)
  - ABDOMINAL DISTENSION [None]
  - CARDIOMEGALY [None]
  - FLUID RETENTION [None]
